FAERS Safety Report 23235406 (Version 1)
Quarter: 2023Q4

REPORT INFORMATION
  Report Type: Spontaneous
  Country: US (occurrence: US)
  Receive Date: 20231128
  Receipt Date: 20231128
  Transmission Date: 20240110
  Serious: Yes (Other)
  Sender: FDA-Public Use
  Company Number: US-PFIZER INC-202300396324

PATIENT
  Age: 61 Year
  Sex: Female

DRUGS (1)
  1. IBRANCE [Suspect]
     Active Substance: PALBOCICLIB
     Dosage: 125 MG
     Route: 048
     Dates: start: 20231024

REACTIONS (13)
  - Neuropathy peripheral [Unknown]
  - Nausea [Unknown]
  - Stomatitis [Unknown]
  - Muscle spasms [Unknown]
  - Chest pain [Unknown]
  - Back pain [Unknown]
  - Musculoskeletal chest pain [Unknown]
  - Decreased appetite [Unknown]
  - Headache [Unknown]
  - Fatigue [Unknown]
  - Muscular weakness [Unknown]
  - Red blood cell count decreased [Unknown]
  - Insomnia [Unknown]

NARRATIVE: CASE EVENT DATE: 20230101
